FAERS Safety Report 9028632 (Version 1)
Quarter: 2013Q1

REPORT INFORMATION
  Report Type: Spontaneous
  Country: US (occurrence: US)
  Receive Date: 20130124
  Receipt Date: 20130124
  Transmission Date: 20140127
  Serious: Yes (Other)
  Sender: FDA-Public Use
  Company Number: US-ELI_LILLY_AND_COMPANY-US201301007381

PATIENT
  Age: 52 Year
  Sex: Male

DRUGS (4)
  1. EFFIENT [Suspect]
     Indication: STENT PLACEMENT
     Dosage: 10 MG, QD
     Route: 048
     Dates: start: 201207, end: 201209
  2. EFFIENT [Suspect]
     Dosage: UNK
     Dates: start: 201212
  3. ASPIRIN [Concomitant]
     Dosage: 325 MG, UNKNOWN
     Route: 048
     Dates: start: 201207
  4. CLOPIDOGREL [Concomitant]
     Dosage: 75 MG, QD

REACTIONS (2)
  - Thrombosis in device [Unknown]
  - Epistaxis [Unknown]
